FAERS Safety Report 9213658 (Version 2)
Quarter: 2013Q2

REPORT INFORMATION
  Report Type: Spontaneous
  Country: US (occurrence: US)
  Receive Date: 20130405
  Receipt Date: 20130510
  Transmission Date: 20140414
  Serious: No
  Sender: FDA-Public Use
  Company Number: US-ASTELLAS-2013US003539

PATIENT
  Sex: 0

DRUGS (4)
  1. MYRBETRIQ [Suspect]
     Indication: POLLAKIURIA
     Dosage: 25 MG, UNKNOWN/D
     Route: 065
     Dates: start: 20130322, end: 20130327
  2. MYRBETRIQ [Suspect]
     Indication: MICTURITION URGENCY
  3. HYDROCHLOROTHIAZIDE [Concomitant]
     Indication: PRODUCT USED FOR UNKNOWN INDICATION
     Dosage: 12.5 MG, UNKNOWN/D
     Route: 065
  4. LISINOPRIL [Concomitant]
     Indication: PRODUCT USED FOR UNKNOWN INDICATION
     Dosage: 10 MG, UNKNOWN/D
     Route: 065

REACTIONS (3)
  - Gastrointestinal disorder [Unknown]
  - Abdominal discomfort [Recovered/Resolved]
  - Nephrolithiasis [None]
